FAERS Safety Report 6012922-9 (Version None)
Quarter: 2008Q4

REPORT INFORMATION
  Report Type: 
  Country: None (occurrence: None)
  Receive Date: 20081219
  Receipt Date: 20081113
  Transmission Date: 20090506
  Serious: No
  Sender: FDA-Public Use
  Company Number: US-BAYER-200839064NA

PATIENT
  Age: 49 Year
  Sex: Female

DRUGS (4)
  1. MIRENA [Suspect]
     Indication: CONTRACEPTION
     Route: 015
     Dates: start: 20081027
  2. BUPROPION HCL [Concomitant]
     Indication: DEPRESSION
     Route: 048
  3. BLOOD PRESSURE MEDICATION NOS [Concomitant]
     Indication: HYPERTENSION
  4. MIDOL [Concomitant]
     Indication: ABDOMINAL PAIN

REACTIONS (5)
  - ABDOMINAL PAIN LOWER [None]
  - IUCD COMPLICATION [None]
  - PROCEDURAL PAIN [None]
  - SECRETION DISCHARGE [None]
  - VAGINAL HAEMORRHAGE [None]
